FAERS Safety Report 6874310-2 (Version None)
Quarter: 2010Q3

REPORT INFORMATION
  Report Type: 
  Country: None (occurrence: None)
  Receive Date: 20100723
  Receipt Date: 20090613
  Transmission Date: 20110219
  Serious: No
  Sender: FDA-Public Use
  Company Number: US-PFIZER INC-2009209512

PATIENT
  Sex: Female
  Weight: 86.182 kg

DRUGS (4)
  1. CHANTIX [Suspect]
     Indication: SMOKING CESSATION THERAPY
     Dosage: 0.5 MG, 1X/DAY
     Dates: start: 20090418
  2. TOPROL-XL [Concomitant]
  3. NORVASC [Concomitant]
  4. HYDROCHLOROTHIAZIDE [Concomitant]

REACTIONS (5)
  - EATING DISORDER [None]
  - GLOSSODYNIA [None]
  - MOOD ALTERED [None]
  - NERVOUSNESS [None]
  - TONGUE DISORDER [None]
